FAERS Safety Report 11782086 (Version 1)
Quarter: 2015Q4

REPORT INFORMATION
  Report Type: Spontaneous
  Country: IT (occurrence: IT)
  Receive Date: 20151126
  Receipt Date: 20151126
  Transmission Date: 20160305
  Serious: Yes (Other)
  Sender: FDA-Public Use
  Company Number: IT-AMGEN-ITASP2015124544

PATIENT
  Age: 82 Year
  Sex: Female
  Weight: 55 kg

DRUGS (5)
  1. METHOTREXATE [Concomitant]
     Active Substance: METHOTREXATE
     Indication: RHEUMATOID ARTHRITIS
     Dosage: 5 MG (2.5 MG TABLETS), UNK
     Route: 048
  2. PROLIA [Suspect]
     Active Substance: DENOSUMAB
     Indication: OSTEOPOROSIS
     Dosage: 60 MG/ML, CYCLICAL
     Route: 058
     Dates: start: 20131023, end: 20150510
  3. COUMADIN [Concomitant]
     Active Substance: WARFARIN SODIUM
     Indication: ATRIAL FIBRILLATION
     Dosage: 5 MG TABLETS, UNK
  4. ALMARYTM [Concomitant]
     Active Substance: FLECAINIDE ACETATE
     Dosage: 200 MG (100 MG TABLETS), UNK
     Route: 048
  5. COLECALCIFEROL [Concomitant]
     Active Substance: CHOLECALCIFEROL
     Dosage: 30 DROPS
     Route: 048

REACTIONS (9)
  - Feeling of body temperature change [Recovered/Resolved]
  - Rheumatoid arthritis [Unknown]
  - Pollakiuria [Recovered/Resolved]
  - Hyperhidrosis [Recovered/Resolved]
  - Myalgia [Recovered/Resolved]
  - Vaginal oedema [Recovered/Resolved]
  - Atrial fibrillation [Unknown]
  - Paraesthesia [Recovered/Resolved]
  - Vaginal disorder [Unknown]

NARRATIVE: CASE EVENT DATE: 20150510
